FAERS Safety Report 8442854-8 (Version None)
Quarter: 2012Q2

REPORT INFORMATION
  Report Type: 
  Country: None (occurrence: None)
  Receive Date: 20120323
  Receipt Date: 20110727
  Transmission Date: 20120825
  Serious: Yes (Other)
  Sender: FDA-Public Use
  Company Number: 163-21880-11061463

PATIENT
  Age: 52 Year
  Sex: Female

DRUGS (10)
  1. REVLIMID [Suspect]
     Indication: MULTIPLE MYELOMA
     Dosage: 25 MG, DAILY X 21 DAYS, PO; 25 MG, DAILY X 21 DAYS, PO
     Route: 048
     Dates: start: 20110101
  2. REVLIMID [Suspect]
     Indication: MULTIPLE MYELOMA
     Dosage: 25 MG, DAILY X 21 DAYS, PO; 25 MG, DAILY X 21 DAYS, PO
     Route: 048
     Dates: start: 20110505, end: 20110526
  3. POTASSIUM CHLORIDE [Concomitant]
  4. OXYCODONE HCL [Concomitant]
  5. DECADRON [Concomitant]
  6. AMLODIPINE [Concomitant]
  7. HYZAAR [Concomitant]
  8. FERROUS SULFATE TAB [Concomitant]
  9. VITAMIN B12 [Concomitant]
  10. VITAMIN D (ERGOCALIFEROL) [Concomitant]

REACTIONS (2)
  - DEEP VEIN THROMBOSIS [None]
  - NEUROPATHY PERIPHERAL [None]
